FAERS Safety Report 8548308-2 (Version None)
Quarter: 2012Q3

REPORT INFORMATION
  Report Type: 
  Country: None (occurrence: None)
  Receive Date: 20120718
  Receipt Date: 20120612
  Transmission Date: 20120928
  Serious: Yes (Life-Threatening, Hospitalization)
  Sender: FDA-Public Use
  Company Number: 001271833A

PATIENT
  Age: 40 Year
  Sex: Female

DRUGS (3)
  1. BENADRYL TAKEN PRN FREQUENTLY [Concomitant]
  2. MOTRIN [Concomitant]
  3. PROACTIV 30 DAY KIT [Suspect]
     Indication: ACNE
     Dosage: ONCE DERMAL
     Dates: start: 20120301

REACTIONS (1)
  - SWELLING FACE [None]
